FAERS Safety Report 7827380-9 (Version None)
Quarter: 2011Q4

REPORT INFORMATION
  Report Type: 
  Country: None (occurrence: None)
  Receive Date: 20111020
  Receipt Date: 20111013
  Transmission Date: 20120403
  Serious: Yes (Hospitalization)
  Sender: FDA-Public Use
  Company Number: CH-BRISTOL-MYERS SQUIBB COMPANY-16157984

PATIENT
  Age: 48 Year
  Sex: Male

DRUGS (7)
  1. NORVIR [Suspect]
     Route: 048
  2. REYATAZ [Interacting]
     Indication: HIV INFECTION
     Route: 048
  3. AKINETON [Concomitant]
     Dosage: THEREAFTER 4 MG RETARD P.O. UNTIL THE FOLLOWING MORNING
     Route: 042
  4. TRUVADA [Suspect]
     Dosage: 1 DF = TABS
  5. CLOPIXOL [Interacting]
     Route: 048
     Dates: start: 20110512, end: 20110513
  6. VALIUM [Suspect]
     Route: 048
     Dates: start: 20110512
  7. TRUXAL [Interacting]
     Route: 048
     Dates: start: 20110513

REACTIONS (3)
  - EXTRAPYRAMIDAL DISORDER [None]
  - PSYCHOTIC DISORDER [None]
  - DRUG INTERACTION [None]
